FAERS Safety Report 19379142 (Version 1)
Quarter: 2021Q2

REPORT INFORMATION
  Report Type: Spontaneous
  Country: US (occurrence: US)
  Receive Date: 20210607
  Receipt Date: 20210607
  Transmission Date: 20210717
  Serious: No
  Sender: FDA-Public Use
  Company Number: US-SA-2021SA187317

PATIENT
  Sex: Female

DRUGS (7)
  1. EMERGEN C [Concomitant]
     Active Substance: MINERALS\VITAMINS
  2. DUPIXENT [Suspect]
     Active Substance: DUPILUMAB
     Indication: DERMATITIS ATOPIC
     Dosage: 300 MG, QOW
     Route: 058
     Dates: start: 202006
  3. BOSWELLIA SERRATA [Concomitant]
  4. PROBIOTICS NOS [Concomitant]
     Active Substance: PROBIOTICS NOS
  5. BILBERRY [VACCINIUM MYRTILLUS] [Concomitant]
  6. MAGNESIUM [Concomitant]
     Active Substance: MAGNESIUM
  7. PSEUDOEPHEDRINE HYDROCHLORIDE. [Concomitant]
     Active Substance: PSEUDOEPHEDRINE HYDROCHLORIDE
     Dosage: 100 MG

REACTIONS (6)
  - Periorbital swelling [Unknown]
  - Therapeutic response decreased [Unknown]
  - Conjunctivitis [Unknown]
  - Erythema [Unknown]
  - Skin exfoliation [Unknown]
  - Eye discharge [Unknown]
